FAERS Safety Report 5091904-8 (Version None)
Quarter: 2006Q3

REPORT INFORMATION
  Report Type: 
  Country: None (occurrence: None)
  Receive Date: 20060825
  Receipt Date: 20060816
  Transmission Date: 20061208
  Serious: Yes (Disabling)
  Sender: FDA-Public Use
  Company Number: 2006086158

PATIENT
  Age: 4 Year
  Sex: Female
  Weight: 12 kg

DRUGS (8)
  1. VFEND [Suspect]
     Indication: DRUG USE FOR UNKNOWN INDICATION
     Dosage: 100 MG (50 MG, 2 IN 1 D), ORAL
     Route: 048
     Dates: start: 20040501
  2. DOMPERIDONE (DOMPERIDONE) [Suspect]
     Indication: DRUG USE FOR UNKNOWN INDICATION
     Dosage: ORAL
     Route: 048
  3. SALBUTAMOL (SALBUTAMOL) [Suspect]
     Indication: ASTHMA
  4. FLUTICASONE PROPIONATE [Suspect]
     Indication: ASTHMA
     Dosage: 50 MG (1 IN 1 D)
  5. BACTRIM PEDIATRIC [Suspect]
     Indication: SUPERINFECTION
     Dosage: 15 ML, ORAL
     Route: 048
     Dates: start: 20020501
  6. GRANOCYTE (LENOGRASTIM) [Suspect]
     Indication: DRUG USE FOR UNKNOWN INDICATION
     Dosage: 13.4, SUBCUTANEOUS
     Route: 058
  7. COTRIMOXAZOL (SULFAMETHOXAZOLE, TRIMTHOPRIM) [Suspect]
     Indication: INFECTION PROPHYLAXIS
     Dosage: 15 ML, ORAL
     Route: 048
     Dates: start: 20020502
  8. GAVISCON [Concomitant]

REACTIONS (6)
  - CRYOGLOBULINAEMIA [None]
  - ECCHYMOSIS [None]
  - OEDEMA [None]
  - PAIN IN EXTREMITY [None]
  - TOE AMPUTATION [None]
  - VASCULITIS [None]
